FAERS Safety Report 11890594 (Version 1)
Quarter: 2016Q1

REPORT INFORMATION
  Report Type: Spontaneous
  Country: US (occurrence: US)
  Receive Date: 20160105
  Receipt Date: 20160105
  Transmission Date: 20160526
  Serious: Yes (Hospitalization, Other)
  Sender: FDA-Public Use
  Company Number: US-BAUSCH-BL-2015-030942

PATIENT
  Age: 78 Year
  Sex: Male

DRUGS (2)
  1. PROVENGE [Suspect]
     Active Substance: SIPULEUCEL-T
     Route: 042
     Dates: start: 20151217, end: 20151217
  2. PROVENGE [Suspect]
     Active Substance: SIPULEUCEL-T
     Indication: PROSTATE CANCER
     Route: 042
     Dates: start: 20151210, end: 20151210

REACTIONS (10)
  - Chronic kidney disease [Unknown]
  - Decreased appetite [Unknown]
  - Chills [Unknown]
  - Type 2 diabetes mellitus [Unknown]
  - Haematuria [Unknown]
  - Infection [Unknown]
  - Pneumonia [Unknown]
  - Malaise [Unknown]
  - Coronary artery disease [Unknown]
  - Urinary tract disorder [Unknown]

NARRATIVE: CASE EVENT DATE: 20151220
